FAERS Safety Report 7225040-9 (Version None)
Quarter: 2011Q1

REPORT INFORMATION
  Report Type: 
  Country: None (occurrence: None)
  Receive Date: 20110107
  Receipt Date: 20110107
  Transmission Date: 20110831
  Serious: Yes (Hospitalization)
  Sender: FDA-Public Use
  Company Number: None

PATIENT
  Age: 82 Year
  Sex: Female
  Weight: 63.7 kg

DRUGS (2)
  1. AGGRENOXX [Suspect]
  2. PRADAXA [Suspect]
     Indication: ATRIAL FIBRILLATION
     Dosage: 150MG BID PO
     Route: 048

REACTIONS (5)
  - FALL [None]
  - HAEMOGLOBIN DECREASED [None]
  - SYNCOPE [None]
  - SPINAL EPIDURAL HAEMORRHAGE [None]
  - HAEMATOCRIT DECREASED [None]
